FAERS Safety Report 4485292-5 (Version None)
Quarter: 2004Q4

REPORT INFORMATION
  Report Type: 
  Country: None (occurrence: None)
  Receive Date: 20041022
  Receipt Date: 20041022
  Transmission Date: 20050328
  Serious: Yes (Hospitalization)
  Sender: FDA-Public Use
  Company Number: None

PATIENT
  Age: 52 Year
  Sex: Male
  Weight: 79 kg

DRUGS (3)
  1. OLANZAPINE [Suspect]
     Indication: BIPOLAR DISORDER
     Dosage: 5 MG QAM ORAL
     Route: 048
     Dates: start: 20040302, end: 20041020
  2. OLANZAPINE [Suspect]
     Indication: DEPRESSION
     Dosage: 5 MG QAM ORAL
     Route: 048
     Dates: start: 20040302, end: 20041020
  3. OLANZAPINE [Suspect]
     Indication: POST-TRAUMATIC STRESS DISORDER
     Dosage: 5 MG QAM ORAL
     Route: 048
     Dates: start: 20040302, end: 20041020

REACTIONS (1)
  - EXTRAPYRAMIDAL DISORDER [None]
